FAERS Safety Report 8059363-0 (Version None)
Quarter: 2012Q1

REPORT INFORMATION
  Report Type: 
  Country: None (occurrence: None)
  Receive Date: 20120120
  Receipt Date: 20120120
  Transmission Date: 20120608
  Serious: Yes (Other)
  Sender: FDA-Public Use
  Company Number: None

PATIENT
  Age: 51 Year
  Sex: Male
  Weight: 82.553 kg

DRUGS (2)
  1. E-CIGARETTE (FLAVOR: ULTIMATE VANILLA) [Suspect]
  2. NICOTINE [Suspect]
     Indication: SMOKING CESSATION THERAPY
     Dates: start: 20111226, end: 20120107

REACTIONS (5)
  - SINUSITIS [None]
  - MALAISE [None]
  - OROPHARYNGEAL PAIN [None]
  - INFLUENZA LIKE ILLNESS [None]
  - PHARYNGITIS [None]
